FAERS Safety Report 23186217 (Version 1)
Quarter: 2023Q4

REPORT INFORMATION
  Report Type: Report from Study
  Country: US (occurrence: US)
  Receive Date: 20231115
  Receipt Date: 20231115
  Transmission Date: 20240110
  Serious: Yes (Other)
  Sender: FDA-Public Use
  Company Number: US-UCBSA-2023053025

PATIENT

DRUGS (4)
  1. LACOSAMIDE [Interacting]
     Active Substance: LACOSAMIDE
     Indication: Status epilepticus
     Dosage: UNK (MEDIAN DOSE 5MG/KG/DAY)
  2. LACOSAMIDE [Interacting]
     Active Substance: LACOSAMIDE
     Indication: Off label use
  3. LEVETIRACETAM [Suspect]
     Active Substance: LEVETIRACETAM
     Indication: Status epilepticus
     Dosage: UNK
  4. LEVETIRACETAM [Suspect]
     Active Substance: LEVETIRACETAM
     Indication: Off label use

REACTIONS (12)
  - Seizure [Unknown]
  - Thrombocytopenia [Unknown]
  - Somnolence [Unknown]
  - Irritability [Unknown]
  - Gene mutation [Unknown]
  - Sedation [Unknown]
  - Drug interaction [Unknown]
  - Agitation [Unknown]
  - Drug ineffective [Unknown]
  - Product use complaint [Unknown]
  - Product availability issue [Unknown]
  - Off label use [Unknown]
